FAERS Safety Report 5280907-6 (Version None)
Quarter: 2007Q1

REPORT INFORMATION
  Report Type: 
  Country: None (occurrence: None)
  Receive Date: 20070329
  Receipt Date: 20070315
  Transmission Date: 20070707
  Serious: Yes (Hospitalization, Other)
  Sender: FDA-Public Use
  Company Number: US-SHR-US-2006-037006

PATIENT
  Age: 25 Year
  Sex: Female

DRUGS (9)
  1. BETASERON [Suspect]
     Dosage: 8 MIU, EVERY 2D
     Route: 058
     Dates: start: 20051202, end: 20060502
  2. OXYCODONE HCL [Concomitant]
     Dosage: 10 MG, EVERY 6H, PRN
     Route: 048
  3. MS CONTIN [Concomitant]
     Dosage: 30 MG, UNK
     Route: 048
  4. ZOLOFT [Concomitant]
     Dosage: 200 MG, UNK
     Route: 048
  5. LORAZEPAM [Concomitant]
     Dosage: 1 MG, 3X/DAY
     Route: 048
  6. BACLOFEN [Concomitant]
     Dosage: 5 MG, 3X/DAY
     Route: 048
  7. RANITIDINE [Concomitant]
     Dosage: 150 MG, 2X/DAY
     Route: 048
  8. AMBIEN [Concomitant]
     Dosage: 12.5 MG, BED T.
     Route: 048
  9. FENTANYL [Concomitant]

REACTIONS (2)
  - BLINDNESS [None]
  - FACIAL PALSY [None]
